FAERS Safety Report 15717461 (Version 1)
Quarter: 2018Q4

REPORT INFORMATION
  Report Type: Spontaneous
  Country: US (occurrence: US)
  Receive Date: 20181129
  Receipt Date: 20181129
  Transmission Date: 20190205
  Serious: No
  Sender: FDA-Public Use
  Company Number: None

PATIENT

DRUGS (2)
  1. ONDANSETRON 4MG/2ML WESTWARD [Suspect]
     Active Substance: ONDANSETRON
     Dosage: ?          OTHER DOSE:SINGLE DOSE VIAL;OTHER ROUTE:IV OR IM?
  2. NALOXONE HCL [Suspect]
     Active Substance: NALOXONE HYDROCHLORIDE
     Dosage: ?          OTHER FREQUENCY:SINGLE DOSE VIAL;OTHER ROUTE:IV, IM, OR SUB Q?

REACTIONS (2)
  - Circumstance or information capable of leading to medication error [None]
  - Product appearance confusion [None]
